FAERS Safety Report 12482792 (Version 1)
Quarter: 2016Q2

REPORT INFORMATION
  Report Type: Report from Study
  Country: HN (occurrence: HN)
  Receive Date: 20160620
  Receipt Date: 20160620
  Transmission Date: 20160815
  Serious: Yes (Other)
  Sender: FDA-Public Use
  Company Number: PHHY2016HN082887

PATIENT
  Age: 85 Year
  Sex: Female
  Weight: 68.27 kg

DRUGS (4)
  1. NUCLEO C.M.P. FORTE [Concomitant]
     Indication: PRODUCT USED FOR UNKNOWN INDICATION
     Dosage: 1 DF, QD
     Route: 048
  2. CO-DIOVAN [Suspect]
     Active Substance: HYDROCHLOROTHIAZIDE\VALSARTAN
     Indication: HYPERTENSION
     Dosage: (HYDROCHLOROTHIAZIDE 12.5 MG,  VALSARTAN 320 MG)
     Route: 048
  3. DOLO NEUROBION XR [Concomitant]
     Indication: PRODUCT USED FOR UNKNOWN INDICATION
     Dosage: UNK UNK, PRN
     Route: 048
  4. CO-DIOVAN [Suspect]
     Active Substance: HYDROCHLOROTHIAZIDE\VALSARTAN
     Dosage: (HYDROCHLOROTHIAZIDE 12.5 MG,  VALSARTAN 320 MG)
     Route: 048
     Dates: start: 20160530

REACTIONS (3)
  - Coronary artery occlusion [Unknown]
  - Cardiac failure [Unknown]
  - Blood pressure increased [Recovered/Resolved]

NARRATIVE: CASE EVENT DATE: 201601
